FAERS Safety Report 5281007-1 (Version None)
Quarter: 2007Q1

REPORT INFORMATION
  Report Type: 
  Country: None (occurrence: None)
  Receive Date: 20061229
  Receipt Date: 20060804
  Transmission Date: 20070707
  Serious: Yes (Other)
  Sender: FDA-Public Use
  Company Number: 2006UW15635

PATIENT
  Sex: Male
  Weight: 108.86 kg

DRUGS (2)
  1. CRESTOR [Suspect]
     Indication: BLOOD CHOLESTEROL INCREASED
     Dosage: 20 MG PO
     Route: 048
  2. ACIPHEX [Concomitant]

REACTIONS (3)
  - MUSCULAR WEAKNESS [None]
  - MYALGIA [None]
  - STOMACH DISCOMFORT [None]
